FAERS Safety Report 23042261 (Version 1)
Quarter: 2023Q4

REPORT INFORMATION
  Report Type: Spontaneous
  Country: US (occurrence: US)
  Receive Date: 20231008
  Receipt Date: 20231008
  Transmission Date: 20240110
  Serious: No
  Sender: FDA-Public Use
  Company Number: US-HORIZON THERAPEUTICS-HZN-2023-005320

PATIENT

DRUGS (31)
  1. KRYSTEXXA [Suspect]
     Active Substance: PEGLOTICASE
     Indication: Gouty tophus
     Dosage: FIRST INFUSION UNK
     Route: 042
     Dates: start: 20230123
  2. KRYSTEXXA [Suspect]
     Active Substance: PEGLOTICASE
     Dosage: 2ND INFUSION UNK
     Route: 042
     Dates: start: 20230206
  3. KRYSTEXXA [Suspect]
     Active Substance: PEGLOTICASE
     Dosage: 3RD INFUSION UNK
     Route: 042
     Dates: start: 20230220
  4. KRYSTEXXA [Suspect]
     Active Substance: PEGLOTICASE
     Dosage: 4TH INFUSION UNK
     Route: 042
     Dates: start: 20230306
  5. KRYSTEXXA [Suspect]
     Active Substance: PEGLOTICASE
     Dosage: 5TH INFUSION 8 MG, 3-HOUR INFUSION
     Route: 042
     Dates: start: 20230320
  6. METHOTREXATE [Suspect]
     Active Substance: METHOTREXATE
     Indication: Product used for unknown indication
     Dosage: 12.5 MG, WEEKLY
     Route: 048
     Dates: start: 20230206
  7. METHOTREXATE [Suspect]
     Active Substance: METHOTREXATE
     Dosage: 20 MG, WEEKLY
     Route: 048
     Dates: start: 20230220, end: 20230410
  8. ALLOPURINOL [Concomitant]
     Active Substance: ALLOPURINOL
     Indication: Premedication
     Dosage: 300 MG, QD
     Route: 048
     Dates: start: 20190124, end: 20190204
  9. ALLOPURINOL [Concomitant]
     Active Substance: ALLOPURINOL
     Dosage: 600 MG, QD
     Route: 048
     Dates: start: 20190204, end: 20221108
  10. ALLOPURINOL [Concomitant]
     Active Substance: ALLOPURINOL
     Dosage: 800 MG, QD
     Route: 048
     Dates: start: 20221108, end: 20230122
  11. ALLOPURINOL [Concomitant]
     Active Substance: ALLOPURINOL
     Dosage: 300 MG, QD
     Route: 048
     Dates: start: 20230410
  12. LOSARTAN [Concomitant]
     Active Substance: LOSARTAN
     Dosage: 50 MG, QD
     Route: 048
  13. LORAZEPAM [Concomitant]
     Active Substance: LORAZEPAM
     Dosage: 0.5 MG, ORAL PRN
     Route: 048
  14. PREDNISONE [Concomitant]
     Active Substance: PREDNISONE
     Dosage: 5 MG, QD, ORAL PRN
     Route: 048
  15. FOLIC ACID [Concomitant]
     Active Substance: FOLIC ACID
     Dosage: 1 MG, QD
     Route: 048
  16. VITAMIN D3 [Concomitant]
     Active Substance: CHOLECALCIFEROL
     Dosage: 1000 U ORALLY DAILY
     Route: 048
  17. DIPHENHYDRAMINE [Concomitant]
     Active Substance: DIPHENHYDRAMINE
     Indication: Prophylaxis
     Dosage: 25 MG PRE-INFUSION PROPHYLAXIS
     Route: 042
     Dates: start: 20230123
  18. DIPHENHYDRAMINE [Concomitant]
     Active Substance: DIPHENHYDRAMINE
     Dosage: 25 MG PRE-INFUSION PROPHYLAXIS
     Route: 042
     Dates: start: 20230206
  19. DIPHENHYDRAMINE [Concomitant]
     Active Substance: DIPHENHYDRAMINE
     Dosage: 50 MG PRE-INFUSION PROPHYLAXIS
     Route: 042
     Dates: start: 20230220
  20. DIPHENHYDRAMINE [Concomitant]
     Active Substance: DIPHENHYDRAMINE
     Dosage: 50 MG  PRE-INFUSION PROPHYLAXIS
     Route: 042
     Dates: start: 20230306
  21. DIPHENHYDRAMINE [Concomitant]
     Active Substance: DIPHENHYDRAMINE
     Dosage: 50 MG  PRE-INFUSION PROPHYLAXIS
     Route: 042
     Dates: start: 20230320
  22. ACETAMINOPHEN [Concomitant]
     Active Substance: ACETAMINOPHEN
     Indication: Prophylaxis
     Dosage: 500 MG
     Route: 048
     Dates: start: 20230123
  23. ACETAMINOPHEN [Concomitant]
     Active Substance: ACETAMINOPHEN
     Dosage: 500 MG PRE-INFUSION PROPHYLAXIS
     Route: 048
     Dates: start: 20230206
  24. ACETAMINOPHEN [Concomitant]
     Active Substance: ACETAMINOPHEN
     Dosage: 500 MG PRE-INFUSION PROPHYLAXIS
     Route: 048
     Dates: start: 20230220
  25. ACETAMINOPHEN [Concomitant]
     Active Substance: ACETAMINOPHEN
     Dosage: 500 MG PRE-INFUSION PROPHYLAXIS
     Route: 048
     Dates: start: 20230306
  26. ACETAMINOPHEN [Concomitant]
     Active Substance: ACETAMINOPHEN
     Dosage: 500 MG PRE-INFUSION PROPHYLAXIS
     Route: 048
     Dates: start: 20230320
  27. UNSPECIFIED INGREDIENT [Concomitant]
     Active Substance: UNSPECIFIED INGREDIENT
     Indication: Prophylaxis
     Dosage: VISIT 1: 40 MG, QD
     Route: 042
     Dates: start: 20230123
  28. UNSPECIFIED INGREDIENT [Concomitant]
     Active Substance: UNSPECIFIED INGREDIENT
     Dosage: VISIT 2: 125 MG, QD
     Route: 042
     Dates: start: 20230206
  29. UNSPECIFIED INGREDIENT [Concomitant]
     Active Substance: UNSPECIFIED INGREDIENT
     Dosage: VISIT 3: 125 MG, QD
     Route: 042
     Dates: start: 20230220
  30. UNSPECIFIED INGREDIENT [Concomitant]
     Active Substance: UNSPECIFIED INGREDIENT
     Dosage: VISIT 4: 125 MG, QD
     Route: 042
     Dates: start: 20230306
  31. UNSPECIFIED INGREDIENT [Concomitant]
     Active Substance: UNSPECIFIED INGREDIENT
     Dosage: 125 MG, QD
     Route: 042
     Dates: start: 20230320

REACTIONS (3)
  - Muscle spasms [Recovered/Resolved]
  - Drug ineffective [Unknown]
  - Gout [Unknown]

NARRATIVE: CASE EVENT DATE: 20230206
